FAERS Safety Report 15046422 (Version 4)
Quarter: 2020Q1

REPORT INFORMATION
  Report Type: Spontaneous
  Country: US (occurrence: US)
  Receive Date: 20180621
  Receipt Date: 20200131
  Transmission Date: 20200409
  Serious: Yes (Hospitalization)
  Sender: FDA-Public Use
  Company Number: US-ACTELION-A-NJ2018-173914

PATIENT
  Age: 74 Year
  Sex: Male
  Weight: 97.51 kg

DRUGS (5)
  1. WARFARIN [Suspect]
     Active Substance: WARFARIN
     Indication: PRODUCT USED FOR UNKNOWN INDICATION
     Route: 065
  2. OXYGEN. [Concomitant]
     Active Substance: OXYGEN
     Dosage: UNK, PRN
  3. UPTRAVI [Suspect]
     Active Substance: SELEXIPAG
     Indication: PULMONARY ARTERIAL HYPERTENSION
     Dosage: 1600 MCG, BID
     Route: 048
  4. OPSUMIT [Concomitant]
     Active Substance: MACITENTAN
  5. ADEMPAS [Concomitant]
     Active Substance: RIOCIGUAT

REACTIONS (12)
  - Fall [Unknown]
  - Asthenia [Unknown]
  - Anaemia [Unknown]
  - Facial bones fracture [Unknown]
  - Renal impairment [Unknown]
  - Hernia repair [Unknown]
  - Pneumonia [Unknown]
  - Haemoglobin decreased [Unknown]
  - Syncope [Unknown]
  - Epistaxis [Unknown]
  - Somnolence [Unknown]
  - Hernia [Unknown]

NARRATIVE: CASE EVENT DATE: 20180516
